FAERS Safety Report 17973159 (Version 1)
Quarter: 2020Q3

REPORT INFORMATION
  Report Type: Spontaneous
  Country: US (occurrence: US)
  Receive Date: 20200701
  Receipt Date: 20200701
  Transmission Date: 20201103
  Serious: No
  Sender: FDA-Public Use
  Company Number: None

PATIENT
  Age: 34 Year
  Sex: Female
  Weight: 59.85 kg

DRUGS (6)
  1. SPIRONOLACTONE. [Suspect]
     Active Substance: SPIRONOLACTONE
     Indication: ACNE
     Route: 048
     Dates: start: 20200529, end: 20200603
  2. MARSHMALLOW [Concomitant]
     Active Substance: ALCOHOL
  3. VITAMIN C [Concomitant]
     Active Substance: ASCORBIC ACID
  4. SPIRONOLACTONE. [Suspect]
     Active Substance: SPIRONOLACTONE
     Indication: RASH
     Route: 048
     Dates: start: 20200529, end: 20200603
  5. ADRENAL SUPPPORT [Concomitant]
  6. LIFEVANTAGE ANTI?AGING CREAM [Suspect]
     Active Substance: COSMETICS
     Indication: THERAPEUTIC SKIN CARE TOPICAL
     Dates: start: 20200520, end: 20200523

REACTIONS (9)
  - Skin discolouration [None]
  - Scar [None]
  - Rash [None]
  - Anxiety [None]
  - Dermatitis [None]
  - Lethargy [None]
  - Chest discomfort [None]
  - Dizziness [None]
  - Dyspnoea [None]

NARRATIVE: CASE EVENT DATE: 20200520
